FAERS Safety Report 13690483 (Version 3)
Quarter: 2021Q3

REPORT INFORMATION
  Report Type: Report from Study
  Country: None (occurrence: IT)
  Receive Date: 20170626
  Receipt Date: 20210925
  Transmission Date: 20211014
  Serious: Yes (Death)
  Sender: FDA-Public Use
  Company Number: IT-ABBVIE-17P-083-2014517-00

PATIENT
  Age: 57 Year
  Sex: Male
  Weight: 70 kg

DRUGS (3)
  1. PREDNISONE. [Concomitant]
     Active Substance: PREDNISONE
     Indication: COLITIS ULCERATIVE
     Route: 048
     Dates: start: 20160725, end: 20160901
  2. HUMIRA [Suspect]
     Active Substance: ADALIMUMAB
     Indication: COLITIS ULCERATIVE
     Route: 058
     Dates: start: 20151012, end: 201604
  3. INFLIXIMAB BIOSIMILARE (REMSIMA) [Concomitant]
     Indication: COLITIS ULCERATIVE
     Dosage: PER INFLIXIMAB SCHEDULED (EVERY 5 W)
     Route: 042
     Dates: start: 20160503

REACTIONS (1)
  - Central nervous system lymphoma [Fatal]

NARRATIVE: CASE EVENT DATE: 201611
